FAERS Safety Report 19270370 (Version 1)
Quarter: 2021Q2

REPORT INFORMATION
  Report Type: Spontaneous
  Country: US (occurrence: US)
  Receive Date: 20210518
  Receipt Date: 20210518
  Transmission Date: 20210717
  Serious: Yes (Hospitalization)
  Sender: FDA-Public Use
  Company Number: None

PATIENT
  Age: 10 Year
  Sex: Male
  Weight: 43 kg

DRUGS (7)
  1. VINCRISTINE 1.4 MG/M2 IV DAYS 1 AND 8, REPEAT EVERY 21 DAYS X5 CYCLES [Concomitant]
     Dates: start: 20191118, end: 20200309
  2. ETOPOSIDE. [Suspect]
     Active Substance: ETOPOSIDE
     Indication: HODGKIN^S DISEASE
     Route: 042
     Dates: start: 20191118, end: 20191121
  3. BLEOMYCIN 10 UNITS/M2 IV DAYS 1 AND 8, REPEAT Q21D X5 CYCLES [Concomitant]
     Dates: start: 20191118, end: 20200309
  4. UDENYCA 4MG SUBQ DAY 6 X5 CYCLES [Concomitant]
     Dates: start: 20191118, end: 20200309
  5. EMEND 150 MG IV DAY 1 ONLY X5 CYCLES [Concomitant]
     Dates: start: 20191118, end: 20200309
  6. CYCLOPHOSPHAMIDE 600 MG/M2 IV DAYS 1?2, REPEAT Q21D X5 CYCLES [Concomitant]
     Dates: start: 20191118, end: 20200309
  7. DOXORUBICIN 25 MG/M2 IV DAYS 1?2, REPEAT Q21D X5 CYCLES [Concomitant]
     Dates: start: 20191118, end: 20200309

REACTIONS (6)
  - Nausea [None]
  - Cough [None]
  - Rash [None]
  - Oxygen saturation decreased [None]
  - Flushing [None]
  - Lip swelling [None]

NARRATIVE: CASE EVENT DATE: 20191119
